FAERS Safety Report 5723174-9 (Version None)
Quarter: 2008Q2

REPORT INFORMATION
  Report Type: 
  Country: None (occurrence: None)
  Receive Date: 20080430
  Receipt Date: 20080418
  Transmission Date: 20081010
  Serious: Yes (Death, Other)
  Sender: FDA-Public Use
  Company Number: US-ELI_LILLY_AND_COMPANY-US200802006149

PATIENT
  Age: 53 Year
  Sex: Male

DRUGS (5)
  1. XIGRIS [Suspect]
     Indication: SEPSIS
     Dosage: UNK, UNK
  2. NOREPINEPHRINE [Concomitant]
     Route: 042
  3. ZOSYN [Concomitant]
     Indication: SEPSIS
  4. VANCOMYCIN HYDROCHLORIDE [Concomitant]
     Indication: SEPSIS
     Route: 042
  5. ANTIBIOTICS [Concomitant]
     Indication: SEPSIS
     Route: 042

REACTIONS (3)
  - HAEMORRHAGE [None]
  - HEPATIC FAILURE [None]
  - SEPSIS [None]
